FAERS Safety Report 6368389-4 (Version None)
Quarter: 2009Q3

REPORT INFORMATION
  Report Type: 
  Country: None (occurrence: None)
  Receive Date: 20090916
  Receipt Date: 20090904
  Transmission Date: 20100115
  Serious: Yes (Other)
  Sender: FDA-Public Use
  Company Number: 8051652

PATIENT
  Age: 47 Year
  Sex: Female

DRUGS (2)
  1. CIMZIA [Suspect]
     Indication: CROHN'S DISEASE
     Dosage: SC
     Route: 058
     Dates: start: 20090814
  2. ENTOCORT EC [Concomitant]

REACTIONS (8)
  - ABASIA [None]
  - AGEUSIA [None]
  - AMNESIA [None]
  - ANOSMIA [None]
  - BRAIN CONTUSION [None]
  - DIZZINESS [None]
  - FALL [None]
  - FORMICATION [None]
